FAERS Safety Report 6805182-X (Version None)
Quarter: 2010Q2

REPORT INFORMATION
  Report Type: 
  Country: None (occurrence: None)
  Receive Date: 20100628
  Receipt Date: 20071001
  Transmission Date: 20101027
  Serious: No
  Sender: FDA-Public Use
  Company Number: US-PFIZER INC-2007080197

PATIENT
  Sex: Male

DRUGS (13)
  1. GEODON [Suspect]
     Route: 048
     Dates: start: 20060601
  2. ACETYLSALICYLIC ACID [Concomitant]
  3. LIPITOR [Concomitant]
  4. AUGMENTIN '125' [Concomitant]
  5. LEXAPRO [Concomitant]
  6. DOCUSATE SODIUM [Concomitant]
  7. NEURONTIN [Concomitant]
  8. LANTUS [Concomitant]
  9. INSULIN [Concomitant]
  10. ALL OTHER THERAPEUTIC PRODUCTS [Concomitant]
  11. INSULIN HUMAN [Concomitant]
  12. MODAFINIL [Concomitant]
  13. VITAMINS [Concomitant]

REACTIONS (1)
  - DRUG INEFFECTIVE [None]
